FAERS Safety Report 15533967 (Version 1)
Quarter: 2018Q4

REPORT INFORMATION
  Report Type: Spontaneous
  Country: FR (occurrence: FR)
  Receive Date: 20181019
  Receipt Date: 20181019
  Transmission Date: 20190205
  Serious: Yes (Hospitalization)
  Sender: FDA-Public Use
  Company Number: FR-PFIZER INC-2018413898

PATIENT
  Age: 47 Year
  Sex: Female

DRUGS (1)
  1. AZITHROMYCINE [Suspect]
     Active Substance: AZITHROMYCIN
     Indication: GENITAL INFECTION FEMALE
     Dosage: 1000 MG, 1X/DAY
     Route: 048
     Dates: start: 20180811, end: 20180825

REACTIONS (2)
  - Blood bilirubin increased [Recovering/Resolving]
  - Transaminases increased [Recovering/Resolving]

NARRATIVE: CASE EVENT DATE: 20180826
